FAERS Safety Report 7925778-1 (Version None)
Quarter: 2011Q4

REPORT INFORMATION
  Report Type: 
  Country: None (occurrence: None)
  Receive Date: 20111118
  Receipt Date: 20110412
  Transmission Date: 20120403
  Serious: No
  Sender: FDA-Public Use
  Company Number: US-AMGEN-USASP2011019446

PATIENT
  Age: 55 Year
  Sex: Female

DRUGS (2)
  1. ENBREL [Suspect]
     Indication: RHEUMATOID ARTHRITIS
     Dosage: 50 MG, QWK
     Dates: start: 20110405
  2. ARAVA [Concomitant]
     Dosage: 1 MG, 2 TIMES/WK
     Dates: start: 20100901

REACTIONS (4)
  - HOT FLUSH [None]
  - ALOPECIA [None]
  - ASTHENIA [None]
  - NAUSEA [None]
